FAERS Safety Report 21165945 (Version 2)
Quarter: 2022Q3

REPORT INFORMATION
  Report Type: Spontaneous
  Country: US (occurrence: US)
  Receive Date: 20220803
  Receipt Date: 20220930
  Transmission Date: 20221027
  Serious: Yes (Death, Life-Threatening, Hospitalization, Other)
  Sender: FDA-Public Use
  Company Number: US-drreddys-LIT/USA/22/0152980

PATIENT
  Age: 32 Year
  Sex: Male

DRUGS (12)
  1. FENTANYL CITRATE [Suspect]
     Active Substance: FENTANYL CITRATE
     Indication: Pain
  2. FENTANYL CITRATE [Suspect]
     Active Substance: FENTANYL CITRATE
     Indication: Cancer pain
     Dosage: 200?G WITH A 10 MINUTE LOCKOUT.
  3. FENTANYL CITRATE [Suspect]
     Active Substance: FENTANYL CITRATE
     Dosage: FENTANYL USE WAS INCREASED OVER THE PRECEDING DAYS WITH 18,400 ?G OF FENTANYL 2 DAYS BEFORE PRESENTA
  4. FENTANYL CITRATE [Suspect]
     Active Substance: FENTANYL CITRATE
     Dosage: FENTANYL USE WAS INCREASED OVER THE PRECEDING DAYS WITH 18,400 ?G OF FENTANYL 2 DAYS BEFORE PRESENTA
  5. FENTANYL CITRATE [Suspect]
     Active Substance: FENTANYL CITRATE
  6. DEXAMETHASONE SODIUM PHOSPHATE [Suspect]
     Active Substance: DEXAMETHASONE SODIUM PHOSPHATE
     Indication: Cancer pain
     Route: 042
  7. HYDROMORPHONE [Suspect]
     Active Substance: HYDROMORPHONE
     Indication: Cancer pain
     Route: 042
  8. HYDROMORPHONE [Suspect]
     Active Substance: HYDROMORPHONE
  9. HALOPERIDOL [Concomitant]
     Active Substance: HALOPERIDOL
     Indication: Cancer pain
  10. HALOPERIDOL [Concomitant]
     Active Substance: HALOPERIDOL
     Indication: Agitation
     Route: 042
  11. LORAZEPAM [Concomitant]
     Active Substance: LORAZEPAM
     Indication: Cancer pain
     Route: 060
  12. LORAZEPAM [Concomitant]
     Active Substance: LORAZEPAM
     Indication: Agitation

REACTIONS (6)
  - Death [Fatal]
  - Drug ineffective [Unknown]
  - Hyperaesthesia [Recovering/Resolving]
  - Encephalopathy [Recovering/Resolving]
  - Neurotoxicity [Unknown]
  - Abdominal pain [Recovering/Resolving]
